FAERS Safety Report 25450784 (Version 3)
Quarter: 2025Q4

REPORT INFORMATION
  Report Type: Spontaneous
  Country: CA (occurrence: CA)
  Receive Date: 20250618
  Receipt Date: 20251028
  Transmission Date: 20260117
  Serious: Yes (Death, Life-Threatening, Other)
  Sender: BRACCO
  Company Number: CA-BRACCO-2025CA03803

PATIENT
  Age: 75 Year
  Sex: Male

DRUGS (1)
  1. PROHANCE [Suspect]
     Active Substance: GADOTERIDOL
     Indication: Magnetic resonance imaging head
     Dosage: 16.3 ML, SINGLE
     Route: 042
     Dates: start: 20250531, end: 20250531

REACTIONS (5)
  - Cardio-respiratory arrest [Fatal]
  - Pulse absent [Fatal]
  - Syncope [Fatal]
  - Dyspnoea [Fatal]
  - Malaise [Fatal]

NARRATIVE: CASE EVENT DATE: 20250531
